FAERS Safety Report 9224652 (Version 1)
Quarter: 2013Q2

REPORT INFORMATION
  Report Type: Spontaneous
  Country: US (occurrence: US)
  Receive Date: 20130411
  Receipt Date: 20130411
  Transmission Date: 20140414
  Serious: No
  Sender: FDA-Public Use
  Company Number: US-TEVA-396845USA

PATIENT
  Age: 50 Year
  Sex: Male

DRUGS (1)
  1. ACTIQ [Suspect]
     Indication: BACK INJURY
     Route: 002

REACTIONS (2)
  - Drug effect increased [Unknown]
  - Off label use [Not Recovered/Not Resolved]
